FAERS Safety Report 15535899 (Version 2)
Quarter: 2018Q4

REPORT INFORMATION
  Report Type: Spontaneous
  Country: US (occurrence: US)
  Receive Date: 20181022
  Receipt Date: 20181130
  Transmission Date: 20190205
  Serious: No
  Sender: FDA-Public Use
  Company Number: US-PFIZER INC-2018423863

PATIENT
  Age: 48 Year
  Sex: Female

DRUGS (1)
  1. METHOTREXATE. [Suspect]
     Active Substance: METHOTREXATE
     Indication: RHEUMATOID ARTHRITIS
     Dosage: UNK, WEEKLY (6 PO OF WK)
     Route: 048
     Dates: start: 20170324, end: 20170518

REACTIONS (6)
  - Pain [Unknown]
  - Treatment failure [Unknown]
  - Stomatitis [Unknown]
  - Headache [Unknown]
  - Alopecia [Recovered/Resolved]
  - Mouth ulceration [Recovered/Resolved]
